FAERS Safety Report 5886453-0 (Version None)
Quarter: 2008Q3

REPORT INFORMATION
  Report Type: 
  Country: None (occurrence: None)
  Receive Date: 20080917
  Receipt Date: 20080908
  Transmission Date: 20090109
  Serious: Yes (Other)
  Sender: FDA-Public Use
  Company Number: FR-JNJFOC-20080901758

PATIENT
  Sex: Female

DRUGS (4)
  1. TOPIRAMATE [Suspect]
     Indication: EPILEPSY
     Route: 048
  2. TETRACYCLINE [Concomitant]
     Indication: ACNE
  3. MINOCIN [Concomitant]
     Route: 048
  4. MINOCIN [Concomitant]
     Indication: ACNE
     Route: 048

REACTIONS (1)
  - ANGIOEDEMA [None]
